FAERS Safety Report 22201596 (Version 4)
Quarter: 2023Q2

REPORT INFORMATION
  Report Type: Spontaneous
  Country: ID (occurrence: ID)
  Receive Date: 20230412
  Receipt Date: 20230524
  Transmission Date: 20230721
  Serious: Yes (Other)
  Sender: FDA-Public Use
  Company Number: ID-ARBOR PHARMACEUTICALS, LLC-ID-2023ARB003131

PATIENT
  Age: 28 Year
  Sex: Female

DRUGS (3)
  1. TRIPTODUR [Suspect]
     Active Substance: TRIPTORELIN
     Indication: In vitro fertilisation
     Dosage: 3.75 MG ADMINISTERED ONCE A MONTH (4-WEEKS) (3.75 MG, 4 WEEKS)
     Route: 030
  2. TRIPTODUR [Suspect]
     Active Substance: TRIPTORELIN
  3. TRIPTODUR [Suspect]
     Active Substance: TRIPTORELIN

REACTIONS (1)
  - Ovarian cyst [Unknown]

NARRATIVE: CASE EVENT DATE: 20230101
